FAERS Safety Report 25117844 (Version 1)
Quarter: 2025Q1

REPORT INFORMATION
  Report Type: Spontaneous
  Country: GB (occurrence: None)
  Receive Date: 20250324
  Receipt Date: 20250324
  Transmission Date: 20250409
  Serious: Yes (Life-Threatening, Disabling, Congenital Anomaly, Other)
  Sender: FDA-CTU
  Company Number: None

PATIENT
  Age: 0 Year
  Sex: Female
  Weight: 48.6 kg

DRUGS (1)
  1. QUETIAPINE [Suspect]
     Active Substance: QUETIAPINE
     Dosage: FREQUENCY : AT BEDTIME;?
     Route: 048
     Dates: start: 197301, end: 20250324

REACTIONS (2)
  - Tardive dyskinesia [None]
  - Brain injury [None]

NARRATIVE: CASE EVENT DATE: 19730111
